FAERS Safety Report 10060881 (Version 1)
Quarter: 2014Q2

REPORT INFORMATION
  Report Type: Spontaneous
  Country: US (occurrence: US)
  Receive Date: 20140404
  Receipt Date: 20140404
  Transmission Date: 20141212
  Serious: No
  Sender: FDA-Public Use
  Company Number: US-009507513-1403USA014051

PATIENT
  Sex: Female
  Weight: 68.39 kg

DRUGS (4)
  1. SINGULAIR [Suspect]
     Indication: ASTHMA
     Dosage: 10 MG, DAILY
     Route: 048
     Dates: start: 199810, end: 19981209
  2. VASOTEC [Suspect]
     Indication: HYPERTENSION
     Dosage: 10 MG, BID
     Route: 048
     Dates: start: 199801, end: 19981209
  3. VITAMINS (UNSPECIFIED) [Concomitant]
  4. OGEN [Concomitant]

REACTIONS (2)
  - Dermatitis bullous [Unknown]
  - Pruritus [Unknown]
